FAERS Safety Report 21267729 (Version 1)
Quarter: 2022Q3

REPORT INFORMATION
  Report Type: Spontaneous
  Country: IT (occurrence: None)
  Receive Date: 20220829
  Receipt Date: 20220829
  Transmission Date: 20221026
  Serious: Yes (Hospitalization, Other)
  Sender: FDA-Public Use
  Company Number: 2022A294181

PATIENT
  Age: 51 Year
  Sex: Female
  Weight: 118 kg

DRUGS (10)
  1. DAPAGLIFLOZIN [Suspect]
     Active Substance: DAPAGLIFLOZIN
     Indication: Type 2 diabetes mellitus
     Dosage: 10 MG ONCE A DAY
     Route: 048
     Dates: start: 20220521, end: 20220625
  2. DAPAGLIFLOZIN [Suspect]
     Active Substance: DAPAGLIFLOZIN
     Indication: Chronic kidney disease
     Dosage: 10 MG ONCE A DAY
     Route: 048
     Dates: start: 20220521, end: 20220625
  3. AZATHIOPRINE SODIUM [Suspect]
     Active Substance: AZATHIOPRINE SODIUM
     Indication: Myasthenia gravis
     Dosage: 3 TABLETS OF 50 MG (150 MG) ONCE A DAY
     Route: 048
     Dates: end: 20220625
  4. ATORVASTATIN [Concomitant]
     Active Substance: ATORVASTATIN
     Indication: Dyslipidaemia
     Dosage: 1 TABLET OF 10 MG PER DAY
     Route: 065
  5. MESTINON [Concomitant]
     Active Substance: PYRIDOSTIGMINE BROMIDE
     Indication: Myasthenia gravis
     Dosage: 1/3 TABLET OF 180 MG RELEASE EXTENDED
     Route: 048
  6. MESTINON [Concomitant]
     Active Substance: PYRIDOSTIGMINE BROMIDE
     Indication: Myasthenia gravis
     Route: 048
  7. METFORMIN [Concomitant]
     Active Substance: METFORMIN HYDROCHLORIDE
     Indication: Type 2 diabetes mellitus
     Route: 065
  8. OMEPRAZOLE [Concomitant]
     Active Substance: OMEPRAZOLE
     Indication: Prophylaxis against gastrointestinal ulcer
     Dosage: 20 MG 1 TABLET PER DAY (INDICATION: GASTROPROTECTOR)
     Route: 065
  9. POLYENOIC OMEGA (ETHYL ESTERS OF POLYUNSATURATED FATTY ACIDS) [Concomitant]
     Indication: Dyslipidaemia
     Dosage: OMEGA 3 1000 MG: 1 TABLET PER DAY
     Route: 065
  10. RAMIPRIL [Concomitant]
     Active Substance: RAMIPRIL
     Indication: Hypertension
     Dosage: 2.5 MG 1 TIME PER DAY
     Route: 065

REACTIONS (3)
  - Anaemia [Not Recovered/Not Resolved]
  - Thrombocytopenia [Recovered/Resolved]
  - Leukopenia [Recovered/Resolved]

NARRATIVE: CASE EVENT DATE: 20220625
